FAERS Safety Report 19167649 (Version 1)
Quarter: 2021Q2

REPORT INFORMATION
  Report Type: Other
  Country: CA (occurrence: CA)
  Receive Date: 20210422
  Receipt Date: 20210422
  Transmission Date: 20210717
  Serious: Yes (Other)
  Sender: FDA-Public Use
  Company Number: CA-APOTEX-2021AP009372

PATIENT
  Sex: Female

DRUGS (3)
  1. FASLODEX [Concomitant]
     Active Substance: FULVESTRANT
     Indication: VULVAL CANCER METASTATIC
     Dosage: 500 MILLIGRAM, QD
     Route: 030
  2. IBRANCE [Concomitant]
     Active Substance: PALBOCICLIB
     Indication: VULVAL CANCER METASTATIC
     Dosage: 125 MILLIGRAM, QD
     Route: 048
  3. ANASTROZOLE. [Suspect]
     Active Substance: ANASTROZOLE
     Indication: VULVAL CANCER METASTATIC
     Dosage: UNK
     Route: 048

REACTIONS (1)
  - Malignant neoplasm progression [Unknown]
